FAERS Safety Report 5441436-X (Version None)
Quarter: 2007Q3

REPORT INFORMATION
  Report Type: 
  Country: None (occurrence: None)
  Receive Date: 20070828
  Receipt Date: 20070828
  Transmission Date: 20080115
  Serious: Yes (Life-Threatening, Hospitalization)
  Sender: FDA-Public Use
  Company Number: None

PATIENT
  Age: 36 Year
  Sex: Female
  Weight: 61.9 kg

DRUGS (1)
  1. XOLAIR [Suspect]
     Indication: ASTHMA
     Dosage: 300 MG EVERY 4 WKS SQ
     Route: 058
     Dates: start: 20070823, end: 20070823

REACTIONS (8)
  - ANAPHYLACTIC REACTION [None]
  - DYSPNOEA [None]
  - FACE OEDEMA [None]
  - HYPOKALAEMIA [None]
  - INJECTION SITE URTICARIA [None]
  - LEUKOCYTOSIS [None]
  - MYALGIA [None]
  - WHEEZING [None]
